FAERS Safety Report 7425910-2 (Version None)
Quarter: 2011Q2

REPORT INFORMATION
  Report Type: 
  Country: None (occurrence: None)
  Receive Date: 20110420
  Receipt Date: 20110405
  Transmission Date: 20111010
  Serious: Yes (Hospitalization)
  Sender: FDA-Public Use
  Company Number: DE-CELGENEUS-062-C5013-11040531

PATIENT
  Age: 76 Year
  Sex: Female
  Weight: 71.5 kg

DRUGS (5)
  1. METOPROLOL [Concomitant]
     Indication: HYPERTENSION
     Route: 048
     Dates: start: 19900101
  2. LENALIDOMIDE [Suspect]
     Route: 048
     Dates: start: 20110301
  3. ALLOPURINOL [Concomitant]
     Indication: PROPHYLAXIS
     Dosage: 300 MILLIGRAM
     Route: 048
     Dates: start: 20110301
  4. LEVOTHYROXINE SODIUM [Concomitant]
     Dosage: 12.5 MILLIGRAM
     Route: 048
     Dates: start: 19940101
  5. ENALAPRIL MALEATE [Concomitant]
     Indication: HYPERTENSION
     Dosage: 20 MILLIGRAM
     Route: 048
     Dates: start: 19700101

REACTIONS (3)
  - DYSPNOEA [None]
  - COUGH [None]
  - GENERAL PHYSICAL HEALTH DETERIORATION [None]
